FAERS Safety Report 24071007 (Version 1)
Quarter: 2024Q3

REPORT INFORMATION
  Report Type: Report from Study
  Country: TW (occurrence: TW)
  Receive Date: 20240710
  Receipt Date: 20240710
  Transmission Date: 20241017
  Serious: No
  Sender: ROCHE
  Company Number: TW-CHUGAI-2023033518

PATIENT
  Age: 72 Year
  Sex: Female

DRUGS (2)
  1. ALECTINIB [Suspect]
     Active Substance: ALECTINIB
     Indication: Non-small cell lung cancer
     Dosage: 600 MILLIGRAM, BID
     Route: 048
  2. ALECTINIB [Suspect]
     Active Substance: ALECTINIB
     Dosage: 300 MILLIGRAM, BID
     Route: 048

REACTIONS (1)
  - Anaemia [Recovered/Resolved]
